FAERS Safety Report 8595630-X (Version None)
Quarter: 2012Q3

REPORT INFORMATION
  Report Type: 
  Country: None (occurrence: None)
  Receive Date: 20120815
  Receipt Date: 20120807
  Transmission Date: 20120928
  Serious: Yes (Other)
  Sender: FDA-Public Use
  Company Number: US-B.I. PHARMACEUTICALS,INC./RIDGEFIELD-2011-BP-21227BP

PATIENT
  Sex: Male

DRUGS (2)
  1. KLONOPIN [Concomitant]
     Indication: ANXIETY
     Route: 048
  2. PRADAXA [Suspect]
     Indication: ATRIAL FIBRILLATION
     Dosage: 300 MG
     Route: 048
     Dates: start: 20110601

REACTIONS (6)
  - CEREBROVASCULAR ACCIDENT [None]
  - VISION BLURRED [None]
  - FATIGUE [None]
  - ABDOMINAL PAIN UPPER [None]
  - DIZZINESS [None]
  - ABDOMINAL DISCOMFORT [None]
